FAERS Safety Report 6611658-0 (Version None)
Quarter: 2010Q1

REPORT INFORMATION
  Report Type: 
  Country: None (occurrence: None)
  Receive Date: 20100222
  Receipt Date: 20100208
  Transmission Date: 20100710
  Serious: Yes (Hospitalization, Other)
  Sender: FDA-Public Use
  Company Number: 2009AC000135

PATIENT
  Age: 49 Year
  Sex: Female

DRUGS (27)
  1. DIGOXIN [Suspect]
     Dosage: 0.25 MG; QD; PO
     Route: 048
     Dates: start: 20020301
  2. ACETAMINOPHEN [Concomitant]
  3. NITROGLYCERIN [Concomitant]
  4. FUROSEMIDE [Concomitant]
  5. CAPTOPRIL [Concomitant]
  6. PREMARIN [Concomitant]
  7. POTASSIUM CL [Concomitant]
  8. LOVASTATIN [Concomitant]
  9. GEMFIBROZIL [Concomitant]
  10. ACIPHEX [Concomitant]
  11. KLOR-CON [Concomitant]
  12. NITROLINGUAL [Concomitant]
  13. SULINDAC [Concomitant]
  14. ASPIRIN [Concomitant]
  15. ALDACTONE [Concomitant]
  16. ALBUTEROL [Concomitant]
  17. LOPID [Concomitant]
  18. CLARITIN [Concomitant]
  19. NITROSTAT [Concomitant]
  20. EPIPEN [Concomitant]
  21. PROAIR HFA [Concomitant]
  22. FUROSEMIDE [Concomitant]
  23. ACIPHEX [Concomitant]
  24. SPIRONOLACTONE [Concomitant]
  25. HYDROCODONE [Concomitant]
  26. PROMETHAZINE [Concomitant]
  27. ALBUTEROL [Concomitant]

REACTIONS (18)
  - CARDIOMEGALY [None]
  - CHEST PAIN [None]
  - CHOLELITHIASIS [None]
  - DECREASED APPETITE [None]
  - DIZZINESS [None]
  - DYSPNOEA EXERTIONAL [None]
  - ECONOMIC PROBLEM [None]
  - HEART RATE IRREGULAR [None]
  - LEFT VENTRICULAR DYSFUNCTION [None]
  - MULTIPLE INJURIES [None]
  - NAUSEA [None]
  - OEDEMA [None]
  - OEDEMA PERIPHERAL [None]
  - PLEURAL EFFUSION [None]
  - SINUS TACHYCARDIA [None]
  - STRESS [None]
  - VISUAL IMPAIRMENT [None]
  - VOMITING [None]
